FAERS Safety Report 22309895 (Version 2)
Quarter: 2023Q2

REPORT INFORMATION
  Report Type: Report from Study
  Country: CN (occurrence: CN)
  Receive Date: 20230511
  Receipt Date: 20230629
  Transmission Date: 20230721
  Serious: Yes (Other)
  Sender: FDA-Public Use
  Company Number: CN-PFIZER INC-PV202300080917

PATIENT
  Age: 32 Year
  Sex: Male

DRUGS (2)
  1. ABROCITINIB [Suspect]
     Active Substance: ABROCITINIB
     Indication: Dermatitis atopic
     Dosage: 200 MG, 1X/DAY (QD)
     Route: 048
     Dates: start: 20210720, end: 20220705
  2. BOS TAURUS GALLSTONE\METRONIDAZOLE [Concomitant]
     Active Substance: BOS TAURUS GALLSTONE\METRONIDAZOLE
     Dosage: UNK
     Route: 048
     Dates: start: 2022

REACTIONS (2)
  - Lung neoplasm malignant [Unknown]
  - Metastases to bone [Unknown]

NARRATIVE: CASE EVENT DATE: 20220705
